FAERS Safety Report 20547460 (Version 3)
Quarter: 2022Q1

REPORT INFORMATION
  Report Type: Report from Study
  Country: CA (occurrence: CA)
  Receive Date: 20220303
  Receipt Date: 20220317
  Transmission Date: 20220423
  Serious: Yes (Other)
  Sender: FDA-Public Use
  Company Number: CA-GILEAD-2022-0571635

PATIENT
  Age: 40 Year
  Sex: Female

DRUGS (3)
  1. SACITUZUMAB GOVITECAN [Suspect]
     Active Substance: SACITUZUMAB GOVITECAN
     Indication: Triple negative breast cancer
     Dosage: 439 MG
     Route: 042
     Dates: start: 20220217
  2. SACITUZUMAB GOVITECAN [Suspect]
     Active Substance: SACITUZUMAB GOVITECAN
     Dosage: 351 MG
     Route: 042
     Dates: start: 20220217
  3. GEMCITABINE [Concomitant]
     Active Substance: GEMCITABINE

REACTIONS (5)
  - Hypotension [Not Recovered/Not Resolved]
  - Hepatic enzyme increased [Unknown]
  - Weight decreased [Unknown]
  - Weight decreased [Unknown]
  - Off label use [Unknown]

NARRATIVE: CASE EVENT DATE: 20220224
